FAERS Safety Report 12092603 (Version 2)
Quarter: 2016Q2

REPORT INFORMATION
  Report Type: Spontaneous
  Country: US (occurrence: US)
  Receive Date: 20160219
  Receipt Date: 20160504
  Transmission Date: 20160815
  Serious: No
  Sender: FDA-Public Use
  Company Number: US-ASTRAZENECA-2016SE14871

PATIENT
  Age: 820 Month
  Sex: Female
  Weight: 59.9 kg

DRUGS (6)
  1. LEVOCETIRIZINE [Concomitant]
     Active Substance: LEVOCETIRIZINE
     Dosage: DAILY
     Route: 048
  2. SYMBICORT [Suspect]
     Active Substance: BUDESONIDE\FORMOTEROL FUMARATE DIHYDRATE
     Indication: CHRONIC OBSTRUCTIVE PULMONARY DISEASE
     Dosage: 160/4.5 MCG 2 PUFFS 2 TIMES DAILY
     Route: 055
     Dates: start: 20160128, end: 20160206
  3. BENADRYL [Concomitant]
     Active Substance: DIPHENHYDRAMINE HYDROCHLORIDE
     Indication: ADVERSE EVENT
     Dosage: TWO TIMES A DAY
     Route: 048
     Dates: start: 20160206, end: 20160209
  4. SYMBICORT [Suspect]
     Active Substance: BUDESONIDE\FORMOTEROL FUMARATE DIHYDRATE
     Indication: ASTHMA
     Dosage: 160/4.5 MCG 2 PUFFS 2 TIMES DAILY
     Route: 055
     Dates: start: 20160128, end: 20160206
  5. MONTELUKAST [Concomitant]
     Active Substance: MONTELUKAST SODIUM
     Indication: CHRONIC OBSTRUCTIVE PULMONARY DISEASE
     Dosage: DAILY
     Route: 055
  6. MONTELUKAST [Concomitant]
     Active Substance: MONTELUKAST SODIUM
     Indication: ASTHMA
     Dosage: DAILY
     Route: 055

REACTIONS (6)
  - Lip swelling [Recovering/Resolving]
  - Oral discomfort [Unknown]
  - Product quality issue [Unknown]
  - Dysgeusia [Recovering/Resolving]
  - Mouth swelling [Recovering/Resolving]
  - Chemical burn of gastrointestinal tract [Recovering/Resolving]

NARRATIVE: CASE EVENT DATE: 201602
